FAERS Safety Report 24638688 (Version 1)
Quarter: 2024Q4

REPORT INFORMATION
  Report Type: Spontaneous
  Country: US (occurrence: US)
  Receive Date: 20241119
  Receipt Date: 20241119
  Transmission Date: 20250115
  Serious: Yes (Other)
  Sender: RANBAXY
  Company Number: US-SUN PHARMACEUTICAL INDUSTRIES LTD-2024R1-479537

PATIENT
  Age: 39 Year
  Sex: Male

DRUGS (2)
  1. PREDNISOLONE [Suspect]
     Active Substance: PREDNISOLONE
     Indication: Macular oedema
     Dosage: UNK UNK, QID
     Route: 047
  2. KETOROLAC TROMETHAMINE [Suspect]
     Active Substance: KETOROLAC TROMETHAMINE
     Indication: Macular oedema
     Dosage: UNK UNK, QID
     Route: 047

REACTIONS (2)
  - Pseudopolyposis [Unknown]
  - Colitis [Unknown]
